FAERS Safety Report 24132922 (Version 1)
Quarter: 2024Q3

REPORT INFORMATION
  Report Type: Spontaneous
  Country: US (occurrence: US)
  Receive Date: 20240724
  Receipt Date: 20240724
  Transmission Date: 20241016
  Serious: Yes (Other)
  Sender: NOVARTIS
  Company Number: US-SANDOZ-SDZ2024US029153

PATIENT
  Sex: Female

DRUGS (27)
  1. METHOTREXATE SODIUM [Suspect]
     Active Substance: METHOTREXATE SODIUM
     Indication: Chronic spontaneous urticaria
     Dosage: UNK
     Route: 065
  2. CYCLOSPORINE [Suspect]
     Active Substance: CYCLOSPORINE
     Indication: Chronic spontaneous urticaria
     Dosage: UNK
     Route: 065
  3. CYCLOSPORINE [Suspect]
     Active Substance: CYCLOSPORINE
     Dosage: 200 MG, QD (100 MG, BID)
     Route: 065
  4. TACROLIMUS [Suspect]
     Active Substance: TACROLIMUS
     Indication: Product used for unknown indication
     Dosage: UNK
     Route: 065
  5. MYCOPHENOLATE MOFETIL [Suspect]
     Active Substance: MYCOPHENOLATE MOFETIL
     Indication: Chronic spontaneous urticaria
     Dosage: UNK
     Route: 065
  6. MONTELUKAST SODIUM [Suspect]
     Active Substance: MONTELUKAST SODIUM
     Indication: Chronic spontaneous urticaria
     Dosage: UNK
     Route: 065
  7. AMITRIPTYLINE HYDROCHLORIDE [Suspect]
     Active Substance: AMITRIPTYLINE HYDROCHLORIDE
     Indication: Chronic spontaneous urticaria
     Dosage: 30 MG, NIGHTLY
     Route: 065
  8. HYDROXYCHLOROQUINE SULFATE [Suspect]
     Active Substance: HYDROXYCHLOROQUINE SULFATE
     Indication: Product used for unknown indication
     Dosage: UNK
     Route: 065
  9. CYCLOPHOSPHAMIDE [Suspect]
     Active Substance: CYCLOPHOSPHAMIDE
     Indication: Product used for unknown indication
     Dosage: UNK
     Route: 065
  10. XOLAIR [Suspect]
     Active Substance: OMALIZUMAB
     Indication: Chronic spontaneous urticaria
     Dosage: 600 MG, BIW (EVERY 2 WEEKS)
     Route: 065
  11. XOLAIR [Suspect]
     Active Substance: OMALIZUMAB
     Dosage: 300 MG (EVERY 28 DAYS, HAS RECEIVED 3 DOSES)
     Route: 065
  12. XOLAIR [Suspect]
     Active Substance: OMALIZUMAB
     Dosage: 450 MG, BIW (600 MG EVERY 2 WEEKS)
     Route: 065
     Dates: end: 202401
  13. PREDNISONE [Suspect]
     Active Substance: PREDNISONE
     Indication: Chronic spontaneous urticaria
     Dosage: 40 MG, QD
     Route: 065
  14. PREDNISONE [Suspect]
     Active Substance: PREDNISONE
     Dosage: 30 MG
     Route: 065
  15. CETIRIZINE HYDROCHLORIDE [Suspect]
     Active Substance: CETIRIZINE HYDROCHLORIDE
     Indication: Chronic spontaneous urticaria
     Dosage: 40 MG, QD (20 MG, BID)
     Route: 065
  16. CETIRIZINE HYDROCHLORIDE [Suspect]
     Active Substance: CETIRIZINE HYDROCHLORIDE
     Dosage: 20 MG, QD
     Route: 065
  17. PEPCID [Suspect]
     Active Substance: FAMOTIDINE
     Indication: Chronic spontaneous urticaria
     Dosage: 40 MG, QD (20 MG, BID)
     Route: 065
  18. PEPCID [Suspect]
     Active Substance: FAMOTIDINE
     Dosage: 80 MG, QD (40 MG, BID)
     Route: 065
  19. DOXEPIN [Suspect]
     Active Substance: DOXEPIN
     Indication: Chronic spontaneous urticaria
     Dosage: 75 MG, NIGHTLY
     Route: 065
  20. PLAQUENIL [Suspect]
     Active Substance: HYDROXYCHLOROQUINE SULFATE
     Indication: Chronic spontaneous urticaria
     Dosage: 400 MG, QD (200 MG, BID)
     Route: 065
     Dates: start: 20230802
  21. IVERMECTIN [Suspect]
     Active Substance: IVERMECTIN
     Indication: Urticaria
     Dosage: 25 UG (25,500 UG, ONCE)
     Route: 065
  22. CYPROHEPTADINE [Suspect]
     Active Substance: CYPROHEPTADINE
     Indication: Chronic spontaneous urticaria
     Dosage: UNK
     Route: 065
  23. AMLODIPINE [Suspect]
     Active Substance: AMLODIPINE BESYLATE
     Indication: Chronic spontaneous urticaria
     Dosage: UNK
     Route: 065
  24. SPIRONOLACTONE [Suspect]
     Active Substance: SPIRONOLACTONE
     Indication: Chronic spontaneous urticaria
     Dosage: UNK
     Route: 065
  25. BACTRIM [Suspect]
     Active Substance: SULFAMETHOXAZOLE\TRIMETHOPRIM
     Indication: Prophylaxis
     Dosage: UNK
     Route: 065
  26. FEXOFENADINE [Suspect]
     Active Substance: FEXOFENADINE HYDROCHLORIDE
     Indication: Product used for unknown indication
     Dosage: 720 MG, QD (360 MG, BID)
     Route: 065
  27. DAPSONE [Suspect]
     Active Substance: DAPSONE
     Indication: Chronic spontaneous urticaria
     Dosage: UNK
     Route: 065

REACTIONS (10)
  - Chronic kidney disease [Unknown]
  - Diabetes mellitus [Unknown]
  - Mental disorder [Unknown]
  - Oedema peripheral [Unknown]
  - Hypertension [Unknown]
  - Muscle spasms [Unknown]
  - Urticaria [Unknown]
  - Headache [Unknown]
  - Off label use [Unknown]
  - Drug ineffective [Unknown]
